FAERS Safety Report 12263538 (Version 1)
Quarter: 2016Q2

REPORT INFORMATION
  Report Type: Spontaneous
  Country: US (occurrence: US)
  Receive Date: 20160413
  Receipt Date: 20160413
  Transmission Date: 20160815
  Serious: No
  Sender: FDA-Public Use
  Company Number: US-JNJFOC-20160314585

PATIENT
  Sex: Female

DRUGS (8)
  1. NORTRIPTYLINE [Concomitant]
     Active Substance: NORTRIPTYLINE
     Indication: PRODUCT USED FOR UNKNOWN INDICATION
     Route: 065
  2. GABAPENTIN. [Concomitant]
     Active Substance: GABAPENTIN
     Indication: NEUROPATHY PERIPHERAL
     Dosage: 200 MG IN MORNING AND 300 MG IN AFTERNOON 200 MG AT NIGHT
     Route: 065
     Dates: start: 201008, end: 201511
  3. TYLENOL [Suspect]
     Active Substance: ACETAMINOPHEN
     Indication: MIGRAINE
     Route: 065
  4. LYRICA [Concomitant]
     Active Substance: PREGABALIN
     Indication: NEUROPATHY PERIPHERAL
     Dosage: 50 MG TWICE A DAY AND THEN 75MG AT NIGHT
     Route: 065
  5. LYRICA [Concomitant]
     Active Substance: PREGABALIN
     Indication: NEUROPATHY PERIPHERAL
     Route: 065
     Dates: start: 20151108
  6. TYLENOL [Suspect]
     Active Substance: ACETAMINOPHEN
     Route: 065
  7. LYRICA [Concomitant]
     Active Substance: PREGABALIN
     Indication: NEUROPATHY PERIPHERAL
     Route: 065
  8. ATENOLOL. [Concomitant]
     Active Substance: ATENOLOL
     Indication: PRODUCT USED FOR UNKNOWN INDICATION
     Route: 065

REACTIONS (3)
  - Product use issue [Unknown]
  - Off label use [Unknown]
  - Heart rate decreased [Unknown]
